FAERS Safety Report 11309094 (Version 3)
Quarter: 2015Q3

REPORT INFORMATION
  Report Type: Report from Study
  Country: DE (occurrence: DE)
  Receive Date: 20150724
  Receipt Date: 20150903
  Transmission Date: 20151125
  Serious: Yes (Death, Other)
  Sender: FDA-Public Use
  Company Number: DE-ABBVIE-15P-062-1431385-00

PATIENT
  Age: 75 Year
  Sex: Male

DRUGS (3)
  1. VIEKIRAX [Suspect]
     Active Substance: OMBITASVIR\PARITAPREVIR\RITONAVIR
     Indication: HEPATITIS C
     Dosage: UNIT DOSE 25/150/100MG
     Route: 048
     Dates: start: 20150715, end: 20150715
  2. EXVIERA [Interacting]
     Active Substance: DASABUVIR
     Indication: HEPATITIS C
     Route: 048
  3. SIMVASTATIN. [Interacting]
     Active Substance: SIMVASTATIN
     Indication: PRODUCT USED FOR UNKNOWN INDICATION
     Route: 048
     Dates: end: 20150717

REACTIONS (5)
  - Tenderness [Unknown]
  - Rhabdomyolysis [Fatal]
  - Contraindicated drug administered [Fatal]
  - Drug interaction [Fatal]
  - Asthenia [Unknown]

NARRATIVE: CASE EVENT DATE: 201507
